FAERS Safety Report 12563337 (Version 1)
Quarter: 2016Q3

REPORT INFORMATION
  Report Type: Spontaneous
  Country: DE (occurrence: DE)
  Receive Date: 20160715
  Receipt Date: 20160715
  Transmission Date: 20161109
  Serious: Yes (Other)
  Sender: FDA-Public Use
  Company Number: GXKR2016DE003359

PATIENT

DRUGS (2)
  1. FLUTAMIDE. [Suspect]
     Active Substance: FLUTAMIDE
     Indication: PROSTATIC SPECIFIC ANTIGEN INCREASED
     Dosage: 250 MG, 3X DAILY
     Route: 065
     Dates: start: 20160510
  2. ELIGARD [Concomitant]
     Active Substance: LEUPROLIDE ACETATE
     Indication: RADICAL PROSTATECTOMY
     Dosage: 3-MONTHLY INJECTION

REACTIONS (3)
  - Respiratory distress [Not Recovered/Not Resolved]
  - Apnoea [Not Recovered/Not Resolved]
  - Cough [Not Recovered/Not Resolved]

NARRATIVE: CASE EVENT DATE: 201605
